FAERS Safety Report 7361363-0 (Version None)
Quarter: 2011Q1

REPORT INFORMATION
  Report Type: 
  Country: None (occurrence: None)
  Receive Date: 20110318
  Receipt Date: 20110309
  Transmission Date: 20110831
  Serious: Yes (Death)
  Sender: FDA-Public Use
  Company Number: B0706684A

PATIENT
  Sex: Male
  Weight: 74 kg

DRUGS (1)
  1. HYCAMTIN [Suspect]
     Dosage: .8MGM2 PER DAY
     Route: 042
     Dates: start: 20060206, end: 20060210

REACTIONS (2)
  - RESPIRATORY FAILURE [None]
  - PNEUMONIA [None]
